FAERS Safety Report 4783104-3 (Version None)
Quarter: 2005Q3

REPORT INFORMATION
  Report Type: 
  Country: None (occurrence: None)
  Receive Date: 20050914
  Receipt Date: 20050622
  Transmission Date: 20060218
  Serious: Yes (Other)
  Sender: FDA-Public Use
  Company Number: 163-20785-05060325

PATIENT
  Age: 55 Year
  Sex: Male

DRUGS (1)
  1. THALOMID [Suspect]
     Indication: BRAIN NEOPLASM MALIGNANT
     Dosage: 1200 MG, DAILY, ORAL
     Route: 048
     Dates: start: 20040304

REACTIONS (2)
  - HEAD INJURY [None]
  - INJURY [None]
